FAERS Safety Report 8188091-6 (Version None)
Quarter: 2012Q1

REPORT INFORMATION
  Report Type: 
  Country: None (occurrence: None)
  Receive Date: 20120306
  Receipt Date: 20120228
  Transmission Date: 20120608
  Serious: No
  Sender: FDA-Public Use
  Company Number: US-PFIZER INC-2012053169

PATIENT
  Sex: Male

DRUGS (2)
  1. AMLODIPINE BESYLATE [Interacting]
     Dosage: UNK
  2. VIAGRA [Suspect]
     Dosage: 100 MG, AS NEEDED
     Route: 048
     Dates: start: 20110101

REACTIONS (2)
  - ERECTILE DYSFUNCTION [None]
  - DRUG INTERACTION [None]
